FAERS Safety Report 21206809 (Version 1)
Quarter: 2022Q3

REPORT INFORMATION
  Report Type: Spontaneous
  Country: JP (occurrence: JP)
  Receive Date: 20220812
  Receipt Date: 20220812
  Transmission Date: 20221027
  Serious: Yes (Hospitalization)
  Sender: FDA-Public Use
  Company Number: JP-BAXTER-2022BAX016884

PATIENT
  Age: 6 Decade

DRUGS (1)
  1. REGUNEAL LCA [Suspect]
     Active Substance: CALCIUM CHLORIDE\DEXTROSE MONOHYDRATE\HYDROCHLORIC ACID\MAGNESIUM CHLORIDE\SODIUM BICARBONATE\SODIUM
     Indication: Peritoneal dialysis
     Dosage: 2000 ML, THREE TIMES (DOSING INTERVAL NOT REPORTED)
     Route: 033
     Dates: start: 20220427

REACTIONS (1)
  - COVID-19 [Recovered/Resolved]
